FAERS Safety Report 20923789 (Version 1)
Quarter: 2022Q2

REPORT INFORMATION
  Report Type: Report from Study
  Country: MX (occurrence: MX)
  Receive Date: 20220607
  Receipt Date: 20220607
  Transmission Date: 20220721
  Serious: Yes (Death)
  Sender: FDA-Public Use
  Company Number: MX-BAYER-2022A079658

PATIENT
  Age: 74 Year
  Sex: Female

DRUGS (1)
  1. ADEMPAS [Suspect]
     Active Substance: RIOCIGUAT
     Indication: Pulmonary arterial hypertension
     Dosage: 2.5 MG, UNK
     Dates: start: 20170407, end: 20220530

REACTIONS (3)
  - Fall [Fatal]
  - Head injury [Fatal]
  - Haematoma [Fatal]

NARRATIVE: CASE EVENT DATE: 20220531
